FAERS Safety Report 6993249-5 (Version None)
Quarter: 2010Q3

REPORT INFORMATION
  Report Type: 
  Country: None (occurrence: None)
  Receive Date: 20100917
  Receipt Date: 20100525
  Transmission Date: 20110219
  Serious: No
  Sender: FDA-Public Use
  Company Number: US-ASTRAZENECA-2010SE24117

PATIENT
  Age: 480 Month
  Sex: Female
  Weight: 61.2 kg

DRUGS (17)
  1. SEROQUEL [Suspect]
     Indication: SLEEP DISORDER
     Dosage: 25 MG TO 300 MG
     Route: 048
     Dates: start: 20030101, end: 20071001
  2. SEROQUEL [Suspect]
     Indication: BIPOLAR DISORDER
     Dosage: 25 MG TO 300 MG
     Route: 048
     Dates: start: 20030101, end: 20071001
  3. CELEXA [Concomitant]
     Dates: start: 20030701, end: 20070801
  4. ZYPREXA [Concomitant]
     Indication: DEPRESSION
     Dates: start: 20040101, end: 20040501
  5. ZYPREXA [Concomitant]
     Dates: start: 20051001, end: 20051201
  6. GEODON [Concomitant]
     Dates: start: 20051209, end: 20060306
  7. CLONAZEPAM [Concomitant]
     Dates: start: 20050101, end: 20060101
  8. LEXAPRO [Concomitant]
     Dates: start: 20070101
  9. ZOCOR [Concomitant]
     Indication: BLOOD CHOLESTEROL INCREASED
     Dates: start: 20030801
  10. ZOCOR [Concomitant]
     Indication: HYPERLIPIDAEMIA
     Dates: start: 20030801
  11. ZOCOR [Concomitant]
     Indication: BLOOD TRIGLYCERIDES INCREASED
     Dates: start: 20030801
  12. ZETIA [Concomitant]
     Indication: BLOOD CHOLESTEROL INCREASED
     Dates: start: 20030801
  13. ZETIA [Concomitant]
     Indication: HYPERLIPIDAEMIA
     Dates: start: 20030801
  14. ZETIA [Concomitant]
     Indication: BLOOD TRIGLYCERIDES INCREASED
     Dates: start: 20030801
  15. VYTORIN [Concomitant]
     Indication: BLOOD CHOLESTEROL INCREASED
     Dates: start: 20030801
  16. VYTORIN [Concomitant]
     Indication: HYPERLIPIDAEMIA
     Dates: start: 20030801
  17. VYTORIN [Concomitant]
     Indication: BLOOD TRIGLYCERIDES INCREASED
     Dates: start: 20030801

REACTIONS (5)
  - BLOOD CHOLESTEROL INCREASED [None]
  - BLOOD TRIGLYCERIDES INCREASED [None]
  - HYPERLIPIDAEMIA [None]
  - OBESITY [None]
  - TYPE 2 DIABETES MELLITUS [None]
